FAERS Safety Report 7764968-8 (Version None)
Quarter: 2011Q3

REPORT INFORMATION
  Report Type: 
  Country: None (occurrence: None)
  Receive Date: 20110921
  Receipt Date: 20110916
  Transmission Date: 20111222
  Serious: Yes (Hospitalization)
  Sender: FDA-Public Use
  Company Number: US-PFIZER INC-US-WYE-H17403710

PATIENT
  Sex: Male
  Weight: 95.238 kg

DRUGS (18)
  1. CELEXA [Concomitant]
     Indication: DEPRESSION
     Dosage: 40 MG, 1X/DAY
     Route: 048
  2. BLINDED NO SUBJECT DRUG [Suspect]
     Indication: OSTEOARTHRITIS
     Dosage: UNK
     Route: 048
     Dates: start: 20081001, end: 20100720
  3. WELLBUTRIN [Concomitant]
     Dosage: UNK
     Route: 065
  4. VOLTAREN [Concomitant]
     Indication: OSTEOARTHRITIS
     Dosage: 75 MG, AS NEEDED
     Route: 048
  5. BLINDED PLACEBO [Suspect]
     Dosage: UNK
     Dates: start: 20100726
  6. BLINDED SD-6010 [Suspect]
     Indication: OSTEOARTHRITIS
     Dosage: UNK
     Route: 048
     Dates: start: 20081001, end: 20100720
  7. BLINDED SD-6010 [Suspect]
     Dosage: UNK
     Dates: start: 20100726
  8. ASPIRIN [Concomitant]
     Indication: PROPHYLAXIS
     Dosage: 325 MG, 1X/DAY
     Route: 048
     Dates: start: 20010101
  9. CORDARONE [Suspect]
     Indication: VENTRICULAR TACHYCARDIA
     Dosage: 200 MG, 2X/DAY
     Route: 048
     Dates: start: 20100409, end: 20100721
  10. ALTACE [Concomitant]
     Indication: HYPERTENSION
     Dosage: 2.5 MG, 1X/DAY
     Route: 048
     Dates: start: 20100701
  11. RISPERDAL [Concomitant]
     Indication: BIPOLAR DISORDER
     Dosage: 3 MG, 1X/DAY
     Route: 048
     Dates: start: 20000101
  12. LOVAZA [Concomitant]
     Indication: MEDICAL DIET
     Dosage: UNK
     Route: 048
     Dates: start: 20010101
  13. BLINDED PLACEBO [Suspect]
     Indication: OSTEOARTHRITIS
     Dosage: UNK
     Route: 048
     Dates: start: 20081001, end: 20100720
  14. BLINDED NO SUBJECT DRUG [Suspect]
     Dosage: UNK
     Dates: start: 20100726
  15. LOPRESSOR [Concomitant]
     Indication: HYPERTENSION
     Dosage: 25 MG, 4X/DAY
     Route: 048
     Dates: start: 20100701
  16. ZOCOR [Concomitant]
     Indication: HYPERLIPIDAEMIA
     Dosage: 80 MG, 1X/DAY
     Route: 048
     Dates: start: 20081105, end: 20100721
  17. ALDACTONE [Concomitant]
     Indication: CARDIAC FAILURE CONGESTIVE
     Dosage: 25 MG, 1X/DAY
     Route: 048
     Dates: start: 20060101
  18. AMBIEN [Concomitant]
     Indication: INSOMNIA
     Dosage: 10 MG, 1X/DAY
     Route: 048
     Dates: start: 20060101

REACTIONS (18)
  - PARKINSONISM [None]
  - URINARY TRACT INFECTION [None]
  - CONSTIPATION [None]
  - TREMOR [None]
  - DEPRESSION [None]
  - GLOMERULAR FILTRATION RATE DECREASED [None]
  - BALANCE DISORDER [None]
  - FALL [None]
  - CARDIAC FAILURE [None]
  - CORONARY ARTERY DISEASE [None]
  - RHABDOMYOLYSIS [None]
  - BLOOD UREA INCREASED [None]
  - DEHYDRATION [None]
  - FATIGUE [None]
  - TOXICITY TO VARIOUS AGENTS [None]
  - BLOOD CREATININE INCREASED [None]
  - BUNDLE BRANCH BLOCK LEFT [None]
  - RENAL FAILURE ACUTE [None]
